FAERS Safety Report 18388298 (Version 3)
Quarter: 2021Q2

REPORT INFORMATION
  Report Type: Report from Study
  Country: US (occurrence: US)
  Receive Date: 20201015
  Receipt Date: 20210629
  Transmission Date: 20210717
  Serious: Yes (Hospitalization, Other)
  Sender: FDA-Public Use
  Company Number: US-EXELIXIS-XL18420032846

PATIENT

DRUGS (13)
  1. NIVOLUMAB [Suspect]
     Active Substance: NIVOLUMAB
     Dosage: 480 MG ON DAY 1 (CYCLE 5, 28 DAYS )
     Route: 042
  2. TESSALON [Concomitant]
     Active Substance: BENZONATATE
     Dosage: UNK
  3. GABAPENTIN. [Concomitant]
     Active Substance: GABAPENTIN
     Dosage: UNK
  4. OXYCODONE [Concomitant]
     Active Substance: OXYCODONE
     Dosage: UNK
  5. XL184 [Suspect]
     Active Substance: CABOZANTINIB
     Dosage: 40 MG, QD
     Route: 048
  6. CYMBALTA [Concomitant]
     Active Substance: DULOXETINE HYDROCHLORIDE
     Dosage: UNK
  7. HYDROCODONE/HOMATROPINE [Concomitant]
     Active Substance: HOMATROPINE METHYLBROMIDE\HYDROCODONE BITARTRATE
     Dosage: UNK
  8. TAMSULOSIN HYDROCHLORIDE. [Concomitant]
     Active Substance: TAMSULOSIN HYDROCHLORIDE
     Dosage: UNK
  9. XL184 [Suspect]
     Active Substance: CABOZANTINIB
     Indication: TESTICULAR CANCER METASTATIC
     Dosage: 40 MG, QD
     Route: 048
     Dates: start: 20200526, end: 20200824
  10. NIVOLUMAB [Suspect]
     Active Substance: NIVOLUMAB
     Indication: TESTICULAR CANCER METASTATIC
     Dosage: 3 MG/KG ON DAY 1 (CYCLE 1?4, 21 DAYS )
     Route: 042
     Dates: start: 20200526
  11. PROTONIX [Concomitant]
     Active Substance: PANTOPRAZOLE SODIUM
     Dosage: UNK
  12. MULTIVITAMIN + MINERAL [Concomitant]
     Active Substance: MINERALS\VITAMINS
     Dosage: UNK
  13. IPILIMUMAB [Suspect]
     Active Substance: IPILIMUMAB
     Indication: TESTICULAR CANCER METASTATIC
     Dosage: 1 MG/KG ON DAY 1 (CYCLE 1?4, 21 DAYS )
     Route: 042
     Dates: start: 20200526

REACTIONS (7)
  - Acute respiratory failure [Unknown]
  - Dyspnoea [Recovered/Resolved]
  - Atypical pneumonia [Unknown]
  - Palmar-plantar erythrodysaesthesia syndrome [Unknown]
  - Pulmonary embolism [Unknown]
  - Myocarditis [Recovering/Resolving]
  - Pneumonitis [Unknown]

NARRATIVE: CASE EVENT DATE: 202008
